FAERS Safety Report 11889326 (Version 2)
Quarter: 2016Q1

REPORT INFORMATION
  Report Type: Spontaneous
  Country: US (occurrence: US)
  Receive Date: 20160105
  Receipt Date: 20160111
  Transmission Date: 20160526
  Serious: No
  Sender: FDA-Public Use
  Company Number: US-BAYER-2015-498626

PATIENT
  Age: 52 Year
  Sex: Female
  Weight: 77.98 kg

DRUGS (2)
  1. ALEVE [Suspect]
     Active Substance: NAPROXEN SODIUM
     Indication: ANALGESIC THERAPY
  2. ACETAMINOPHEN. [Concomitant]
     Active Substance: ACETAMINOPHEN

REACTIONS (6)
  - Lip swelling [None]
  - Pruritus [None]
  - Mouth swelling [None]
  - Mass [None]
  - Dyspnoea [None]
  - Skin tightness [None]
